FAERS Safety Report 9389028 (Version 1)
Quarter: 2013Q3

REPORT INFORMATION
  Report Type: Spontaneous
  Country: DK (occurrence: DK)
  Receive Date: 20130708
  Receipt Date: 20130708
  Transmission Date: 20140515
  Serious: Yes (Hospitalization, Disabling)
  Sender: FDA-Public Use
  Company Number: DK-ACTAVIS-2013-11894

PATIENT
  Sex: Male

DRUGS (3)
  1. IBUPROFEN (UNKNOWN) [Suspect]
     Indication: BACK PAIN
     Dosage: UNK
     Route: 065
     Dates: start: 200904
  2. DICLON /00372302/ [Suspect]
     Indication: BACK PAIN
     Dosage: UNK
     Route: 065
     Dates: start: 200904
  3. IBUMETIN [Suspect]
     Indication: BACK PAIN
     Dosage: UNK
     Route: 065
     Dates: start: 200904

REACTIONS (18)
  - Sinus polyp [Not Recovered/Not Resolved]
  - Nasal polyps [Not Recovered/Not Resolved]
  - Lung disorder [Not Recovered/Not Resolved]
  - Asthma [Not Recovered/Not Resolved]
  - Anosmia [Not Recovered/Not Resolved]
  - Dyspepsia [Not Recovered/Not Resolved]
  - Nasal congestion [Not Recovered/Not Resolved]
  - Gastric ulcer [Not Recovered/Not Resolved]
  - Sinus polyp [Not Recovered/Not Resolved]
  - Eosinophilia [Not Recovered/Not Resolved]
  - Bone erosion [Not Recovered/Not Resolved]
  - Abdominal tenderness [Not Recovered/Not Resolved]
  - Inflammation [Not Recovered/Not Resolved]
  - Abdominal discomfort [Not Recovered/Not Resolved]
  - Vomiting [Not Recovered/Not Resolved]
  - Malaise [Not Recovered/Not Resolved]
  - Nasopharyngitis [None]
  - Hypersensitivity [None]
